FAERS Safety Report 5382852-4 (Version None)
Quarter: 2007Q3

REPORT INFORMATION
  Report Type: 
  Country: None (occurrence: None)
  Receive Date: 20070705
  Receipt Date: 20070625
  Transmission Date: 20080115
  Serious: Yes (Hospitalization)
  Sender: FDA-Public Use
  Company Number: US019594

PATIENT
  Age: 59 Year
  Sex: Female
  Weight: 72.5755 kg

DRUGS (9)
  1. FENTANYL CITRATE [Suspect]
     Indication: COMPLEX REGIONAL PAIN SYNDROME
     Dosage: 400 UG BID BUCCAL
     Route: 002
     Dates: start: 20060801
  2. ADVAIR DISKUS 100/50 [Concomitant]
  3. INTAL [Concomitant]
  4. ZELNORM [Concomitant]
  5. XANAX XR [Concomitant]
  6. MAXZIDE [Concomitant]
  7. ACIPHEX [Concomitant]
  8. PREMARIN [Concomitant]
  9. ALLERGY SHOTS [Concomitant]

REACTIONS (9)
  - ABDOMINAL PAIN UPPER [None]
  - BRONCHITIS [None]
  - CONSTIPATION [None]
  - DEHYDRATION [None]
  - GINGIVAL BLEEDING [None]
  - GINGIVAL SWELLING [None]
  - HYPOKALAEMIA [None]
  - NAUSEA [None]
  - VOMITING [None]
